FAERS Safety Report 18927745 (Version 4)
Quarter: 2022Q1

REPORT INFORMATION
  Report Type: Report from Study
  Country: US (occurrence: US)
  Receive Date: 20210223
  Receipt Date: 20220118
  Transmission Date: 20220423
  Serious: No
  Sender: FDA-Public Use
  Company Number: NVSC2021US034634

PATIENT
  Sex: Female

DRUGS (1)
  1. XIIDRA [Suspect]
     Active Substance: LIFITEGRAST
     Indication: Product used for unknown indication
     Dosage: UNK
     Route: 065

REACTIONS (6)
  - Dysgraphia [Unknown]
  - Musculoskeletal disorder [Unknown]
  - Eye disorder [Unknown]
  - Dry eye [Unknown]
  - Eye irritation [Unknown]
  - Drug ineffective [Unknown]
